FAERS Safety Report 6348865-0 (Version None)
Quarter: 2009Q3

REPORT INFORMATION
  Report Type: 
  Country: None (occurrence: None)
  Receive Date: 20090911
  Receipt Date: 20090907
  Transmission Date: 20100115
  Serious: Yes (Hospitalization)
  Sender: FDA-Public Use
  Company Number: FR-WYE-H09923509

PATIENT
  Sex: Female
  Weight: 78 kg

DRUGS (2)
  1. TORISEL [Suspect]
     Indication: RENAL CELL CARCINOMA
     Route: 042
     Dates: start: 20090513, end: 20090617
  2. TORISEL [Suspect]
     Route: 042
     Dates: start: 20090702

REACTIONS (1)
  - BILE DUCT STONE [None]
